FAERS Safety Report 8185201 (Version 4)
Quarter: 2014Q1

REPORT INFORMATION
  Report Type: Spontaneous
  Country: US (occurrence: US)
  Receive Date: 20111018
  Receipt Date: 20140107
  Transmission Date: 20141002
  Serious: Yes (Hospitalization, Other)
  Sender: FDA-Public Use
  Company Number: US-ASTRAZENECA-2011SE10858

PATIENT
  Age: 818 Month
  Sex: Female
  Weight: 106.1 kg

DRUGS (38)
  1. SYMBICORT PMDI [Suspect]
     Indication: ASTHMA
     Dosage: 80/4.5 MCG, UNKNOWN
     Route: 055
  2. SYMBICORT PMDI [Suspect]
     Indication: PNEUMONIA
     Dosage: 80/4.5 MCG, UNKNOWN
     Route: 055
  3. SYMBICORT PMDI [Suspect]
     Indication: ASTHMA
     Dosage: 160 MCG-4.5, 2 PUFFS  TWO TIMES EVERYDAY
     Route: 055
     Dates: start: 20120509
  4. SYMBICORT PMDI [Suspect]
     Indication: PNEUMONIA
     Dosage: 160 MCG-4.5, 2 PUFFS  TWO TIMES EVERYDAY
     Route: 055
     Dates: start: 20120509
  5. SYMBICORT PMDI [Suspect]
     Indication: ASTHMA
     Dosage: 160/4.5 LESS THAN PRESCRIBED, UNKNOWN FREQUENCY
     Route: 055
     Dates: end: 201301
  6. SYMBICORT PMDI [Suspect]
     Indication: PNEUMONIA
     Dosage: 160/4.5 LESS THAN PRESCRIBED, UNKNOWN FREQUENCY
     Route: 055
     Dates: end: 201301
  7. SYMBICORT PMDI [Suspect]
     Indication: ASTHMA
     Dosage: 160/4.5, TWO PUFFS TWICE DAILY
     Route: 055
     Dates: start: 201301
  8. SYMBICORT PMDI [Suspect]
     Indication: PNEUMONIA
     Dosage: 160/4.5, TWO PUFFS TWICE DAILY
     Route: 055
     Dates: start: 201301
  9. METOPROLOL SUCCINATE [Suspect]
     Route: 048
     Dates: start: 20120619
  10. MORPHINE [Suspect]
     Route: 065
  11. ACETAMINOPHEN [Suspect]
     Route: 065
  12. LOW DOSE ASPIRIN EC [Concomitant]
     Route: 048
     Dates: start: 20120509
  13. ADALAT CC [Concomitant]
     Route: 048
     Dates: start: 20120526
  14. ALBUTEROL SULFATE HFA [Concomitant]
     Dosage: 90 MCG 2 PUFFS, EVERY 4-6 HOURS
     Route: 055
     Dates: start: 20120510
  15. ALBUTEROL SULFATE HFA [Concomitant]
     Dosage: AS NEEDED
     Route: 055
  16. ALLEGRA [Concomitant]
     Route: 048
     Dates: start: 20120705
  17. ALLEGRA [Concomitant]
     Route: 048
  18. CLONIDINE HCL [Concomitant]
     Route: 048
     Dates: start: 20120829
  19. DEXILANT [Concomitant]
     Route: 048
     Dates: start: 20120509
  20. DIOVAN [Concomitant]
     Route: 048
     Dates: start: 20120519
  21. FLEXERIL [Concomitant]
     Route: 048
     Dates: start: 20120906
  22. FLONASE [Concomitant]
     Route: 045
     Dates: start: 20120510
  23. GABAPENTIN [Concomitant]
     Route: 048
     Dates: start: 20121031
  24. LORAZEPAM [Concomitant]
     Route: 048
  25. LORAZEPAM [Concomitant]
     Dosage: AS NEEDED
     Route: 048
  26. PRAVASTATIN SODIUM [Concomitant]
     Route: 048
     Dates: start: 20120924
  27. SERTRALINE HCL [Concomitant]
     Route: 048
     Dates: start: 20121018
  28. SINGULAIR [Concomitant]
     Route: 048
     Dates: start: 20120510
  29. SPIRONOLACTONE [Concomitant]
     Route: 048
     Dates: start: 20120809
  30. VITAMIN B COMPLEX [Concomitant]
     Route: 048
     Dates: start: 20120509
  31. VITAMIN B 12 [Concomitant]
     Route: 048
     Dates: start: 20120509
  32. VITAMIN C [Concomitant]
     Route: 048
     Dates: start: 20120509
  33. VITAMIN D3 ALOE [Concomitant]
     Dosage: 120 MG- 1000 UNIT- 10 MG-400 MCG -200 MCG- 100 MCG 1 TABLET DAILY
     Route: 048
     Dates: start: 20120509
  34. VITAMIN E [Concomitant]
     Dosage: 1000 UNITS DAILY
     Route: 048
     Dates: start: 20120509
  35. WOMENS DAILY MULTIVITAMIN [Concomitant]
     Dosage: 18 MG- 0.4 MG- 450 MG , 1 TABLET DAILY
     Route: 048
     Dates: start: 20120509
  36. XOPENEX [Concomitant]
     Dosage: 1.25 MG/3 ML INHALE 3 ML BY NEBULISTAION ROUTE EVERY 8 HOURS
     Dates: start: 20120510
  37. CYMBALTA [Concomitant]
  38. OTHER INHALERS (UNSPECIFIED) [Concomitant]

REACTIONS (16)
  - Pulmonary oedema [Unknown]
  - Pneumonia [Recovered/Resolved]
  - Blood pressure fluctuation [Recovered/Resolved]
  - Malaise [Unknown]
  - Arthritis [Unknown]
  - Asthma [Unknown]
  - Malaise [Unknown]
  - Respiratory disorder [Unknown]
  - Gait disturbance [Unknown]
  - Musculoskeletal pain [Unknown]
  - Fibromyalgia [Unknown]
  - Intervertebral disc degeneration [Unknown]
  - Osteoarthritis [Unknown]
  - Depression [Unknown]
  - Nausea [Unknown]
  - Off label use [Unknown]
